FAERS Safety Report 4552695-X (Version None)
Quarter: 2005Q1

REPORT INFORMATION
  Report Type: 
  Country: None (occurrence: None)
  Receive Date: 20050114
  Receipt Date: 20041125
  Transmission Date: 20050727
  Serious: Yes (Hospitalization)
  Sender: FDA-Public Use
  Company Number: 200414451FR

PATIENT
  Age: 71 Year
  Sex: Male

DRUGS (6)
  1. LASILIX [Suspect]
     Route: 048
     Dates: start: 20040903, end: 20040921
  2. APROVEL [Suspect]
     Route: 048
     Dates: start: 20040903, end: 20040921
  3. ZYLORIC [Concomitant]
     Route: 048
  4. NICARDIPINE HCL [Concomitant]
     Route: 048
  5. MEDIATOR [Concomitant]
     Route: 048
  6. EUCALCIC [Concomitant]
     Route: 048

REACTIONS (6)
  - CONDITION AGGRAVATED [None]
  - HYPERPHOSPHATAEMIA [None]
  - HYPOCHLORAEMIA [None]
  - HYPONATRAEMIA [None]
  - METABOLIC ALKALOSIS [None]
  - RENAL FAILURE [None]
